FAERS Safety Report 23076570 (Version 1)
Quarter: 2023Q4

REPORT INFORMATION
  Report Type: Spontaneous
  Country: CA (occurrence: None)
  Receive Date: 20231017
  Receipt Date: 20231017
  Transmission Date: 20240110
  Serious: Yes (Hospitalization, Other)
  Sender: FDA-Public Use
  Company Number: 2023A231958

PATIENT
  Sex: Female

DRUGS (22)
  1. BUDESONIDE\FORMOTEROL FUMARATE [Suspect]
     Active Substance: BUDESONIDE\FORMOTEROL FUMARATE
     Dosage: DOSE 2 DF, FREQUENCY DAILY
     Route: 055
  2. PULMICORT TURBUHALER [Suspect]
     Active Substance: BUDESONIDE
     Route: 055
  3. ASPIRIN [Suspect]
     Active Substance: ASPIRIN
  4. ALVESCO [Suspect]
     Active Substance: CICLESONIDE
     Route: 055
  5. ALVESCO [Suspect]
     Active Substance: CICLESONIDE
     Route: 055
  6. BREO ELLIPTA [Suspect]
     Active Substance: FLUTICASONE FUROATE\VILANTEROL TRIFENATATE
     Indication: Asthma
     Route: 055
  7. BREO ELLIPTA [Suspect]
     Active Substance: FLUTICASONE FUROATE\VILANTEROL TRIFENATATE
     Indication: Asthma
     Route: 055
  8. DEXAMETHASONE [Suspect]
     Active Substance: DEXAMETHASONE
  9. GLYCOPYRROLATE [Suspect]
     Active Substance: GLYCOPYRROLATE
  10. GLYCOPYRROLATE [Suspect]
     Active Substance: GLYCOPYRROLATE
  11. LEVOFLOXACIN [Suspect]
     Active Substance: LEVOFLOXACIN
  12. LEVOFLOXACIN HEMIHYDRATE [Suspect]
     Active Substance: LEVOFLOXACIN
  13. MOMETASONE FUROATE [Suspect]
     Active Substance: MOMETASONE FUROATE
  14. NASONEX [Suspect]
     Active Substance: MOMETASONE FUROATE
     Route: 055
  15. PREDNISONE [Suspect]
     Active Substance: PREDNISONE
     Indication: Asthma
  16. PREDNISONE [Suspect]
     Active Substance: PREDNISONE
     Indication: Asthma
  17. ALBUTEROL [Suspect]
     Active Substance: ALBUTEROL
     Indication: Asthma
  18. ALBUTEROL [Suspect]
     Active Substance: ALBUTEROL
     Indication: Asthma
  19. ALBUTEROL [Suspect]
     Active Substance: ALBUTEROL
     Indication: Asthma
  20. SINGULAIR [Suspect]
     Active Substance: MONTELUKAST SODIUM
     Route: 048
  21. NUCALA [Concomitant]
     Active Substance: MEPOLIZUMAB
  22. NUCALA [Concomitant]
     Active Substance: MEPOLIZUMAB
     Route: 042

REACTIONS (18)
  - Asthma [Recovered/Resolved]
  - Bronchial wall thickening [Recovered/Resolved]
  - Bronchopulmonary aspergillosis [Recovered/Resolved]
  - Chest discomfort [Recovered/Resolved]
  - Drug hypersensitivity [Recovered/Resolved]
  - Dyspnoea [Recovered/Resolved]
  - Ecchymosis [Recovered/Resolved]
  - Full blood count abnormal [Recovered/Resolved]
  - Loss of personal independence in daily activities [Recovered/Resolved]
  - Lung disorder [Recovered/Resolved]
  - Nasal polyps [Recovered/Resolved]
  - Neuropathy peripheral [Recovered/Resolved]
  - Ocular hyperaemia [Recovered/Resolved]
  - Pain in extremity [Recovered/Resolved]
  - Paraesthesia [Recovered/Resolved]
  - Sleep disorder due to a general medical condition [Recovered/Resolved]
  - Wheezing [Recovered/Resolved]
  - Therapeutic product effect incomplete [Recovered/Resolved]
